FAERS Safety Report 4576384-0 (Version None)
Quarter: 2005Q1

REPORT INFORMATION
  Report Type: 
  Country: None (occurrence: None)
  Receive Date: 20050207
  Receipt Date: 20050201
  Transmission Date: 20050727
  Serious: Yes (Hospitalization)
  Sender: FDA-Public Use
  Company Number: 200510005BSV

PATIENT
  Age: 77 Year
  Sex: Female

DRUGS (5)
  1. ACETYLSALICYLIC ACID [Suspect]
     Indication: FEMORAL NECK FRACTURE
     Dates: start: 20041101, end: 20050112
  2. FOSAMAX [Suspect]
     Dosage: ORAL
     Route: 048
     Dates: end: 20050112
  3. PREDNISOLONE [Suspect]
     Dates: end: 20050112
  4. NSAID (NOS) (NSAID'S) [Suspect]
     Indication: FEMORAL NECK FRACTURE
  5. ZANTAC [Concomitant]

REACTIONS (3)
  - ANAEMIA [None]
  - MELAENA [None]
  - OESOPHAGEAL ULCER [None]
